FAERS Safety Report 17407206 (Version 4)
Quarter: 2020Q2

REPORT INFORMATION
  Report Type: Report from Study
  Country: US (occurrence: US)
  Receive Date: 20200212
  Receipt Date: 20200625
  Transmission Date: 20200713
  Serious: Yes (Other)
  Sender: FDA-Public Use
  Company Number: US-ASTELLAS-2020US004549

PATIENT
  Sex: Male

DRUGS (2)
  1. ENZALUTAMIDE [Suspect]
     Active Substance: ENZALUTAMIDE
     Indication: HORMONE-DEPENDENT PROSTATE CANCER
     Route: 048
     Dates: start: 202001
  2. ENZALUTAMIDE [Suspect]
     Active Substance: ENZALUTAMIDE
     Route: 048

REACTIONS (8)
  - Depressed level of consciousness [Unknown]
  - Insomnia [Unknown]
  - Fatigue [Unknown]
  - Presyncope [Unknown]
  - Dry eye [Unknown]
  - Hypersensitivity [Unknown]
  - Eye irritation [Unknown]
  - Feeling hot [Unknown]
